FAERS Safety Report 12270912 (Version 7)
Quarter: 2019Q3

REPORT INFORMATION
  Report Type: Spontaneous
  Country: US (occurrence: US)
  Receive Date: 20160415
  Receipt Date: 20190822
  Transmission Date: 20191004
  Serious: Yes (Hospitalization, Disabling, Other)
  Sender: FDA-Public Use
  Company Number: US-PFIZER INC-2016210890

PATIENT
  Age: 58 Year
  Sex: Female
  Weight: 117 kg

DRUGS (36)
  1. LYRICA [Suspect]
     Active Substance: PREGABALIN
     Indication: FIBROMYALGIA
     Dosage: UNK, 3X/DAY (LOW DOSE)
     Route: 048
     Dates: start: 2007
  2. CLONIDINE. [Concomitant]
     Active Substance: CLONIDINE
     Indication: BLOOD PRESSURE ABNORMAL
     Dosage: 2 DF, DAILY
     Route: 048
     Dates: start: 2016
  3. BACLOFEN. [Concomitant]
     Active Substance: BACLOFEN
     Indication: PAIN
     Dosage: 20 MG, TAKE 1 TAB BY MOUTH 2 TO 3 (TWO TO THREE) TIMES DAILY AS NEEDED
     Route: 048
  4. INSULIN [Concomitant]
     Active Substance: INSULIN NOS
     Dosage: 60 IU, 1X/DAY (MORNING)
  5. FLEXERIL [Concomitant]
     Active Substance: CYCLOBENZAPRINE HYDROCHLORIDE
     Indication: MUSCLE SPASMS
     Dosage: 10 MG, TAKE ONE TABLET BY MOUTH THREE TIMES DAILY AS NEEDED
     Route: 048
     Dates: start: 2007
  6. OMEGA-3 FATTY ACIDS [Concomitant]
     Active Substance: OMEGA-3 FATTY ACIDS
     Indication: BLOOD TRIGLYCERIDES
  7. VITAMIN D [Concomitant]
     Active Substance: VITAMIN D NOS
     Dosage: 1000 IU, 1X/DAY
     Route: 048
  8. K TAB 10 [Concomitant]
     Indication: BLOOD POTASSIUM
     Dosage: 10 MEQ, 1X/DAY
     Route: 048
  9. GLYCOLAX [Concomitant]
     Active Substance: POLYETHYLENE GLYCOL 3350
     Indication: CONSTIPATION
     Dosage: 17 G, 1X/DAY (DISSOLVE IN A GLASS (8 OZ ) OF WATER
     Route: 048
  10. MIRALAX [Concomitant]
     Active Substance: POLYETHYLENE GLYCOL 3350
     Indication: CONSTIPATION
     Dosage: 17 G, 1X/DAY (DISSOLVE IN A GLASS (8 OZ ) OF WATER
     Route: 048
  11. HYZAAR [Concomitant]
     Active Substance: HYDROCHLOROTHIAZIDE\LOSARTAN POTASSIUM
     Indication: BLOOD PRESSURE ABNORMAL
     Dosage: 125 MG, 1X/DAY (LOSARTAN 100 MG/HYDROCHLOROTHIAZIDE 25 MG)
     Route: 048
     Dates: start: 2005
  12. BACLOFEN. [Concomitant]
     Active Substance: BACLOFEN
     Indication: MUSCLE SPASMS
  13. SYMBICORT [Concomitant]
     Active Substance: BUDESONIDE\FORMOTEROL FUMARATE DIHYDRATE
     Dosage: UNK, 2X/DAY (INHALE 2 PUFFS INTO THE LUNGS 2 (TWO) TIMES DAILY (BUDESONIDE: 160MCG, FORMOTEROL FUMA)
     Route: 045
  14. CATAPRES [Concomitant]
     Active Substance: CLONIDINE HYDROCHLORIDE
     Indication: BLOOD PRESSURE ABNORMAL
     Dosage: 0.2 MG, 2X/DAY (1TAB BY MOUTH 2 (TWO) TIMES DAILY)
     Route: 048
  15. VALIUM [Concomitant]
     Active Substance: DIAZEPAM
     Indication: ANXIETY
     Dosage: 0.25 MG NIGHTLY AT BEDTIME AS NEEDED
     Route: 048
  16. KLOR-CON M10 [Concomitant]
     Active Substance: POTASSIUM CHLORIDE
     Indication: BLOOD POTASSIUM
     Dosage: 10 MEQ, 1X/DAY
     Route: 048
  17. LYRICA [Suspect]
     Active Substance: PREGABALIN
     Indication: DIABETIC NEUROPATHY
     Dosage: 150 MG, 2X/DAY
     Route: 048
  18. NORCO [Concomitant]
     Active Substance: ACETAMINOPHEN\HYDROCODONE BITARTRATE
     Indication: PAIN
     Dosage: 1 DF, AS NEEDED (HYDROCODONE BITARTRATE: 7.5 MG, PARACETAMOL: 325 MG; 2 TIMES DAILY AS NEEDED )
  19. MYCOSTATIN [Concomitant]
     Active Substance: NYSTATIN
     Indication: CANDIDA INFECTION
     Dosage: 5 ML, 4X/DAY
     Route: 048
  20. LYRICA [Suspect]
     Active Substance: PREGABALIN
     Indication: NEUROPATHY PERIPHERAL
  21. FLONASE [Concomitant]
     Active Substance: FLUTICASONE PROPIONATE
     Dosage: UNK, 1X/DAY (PLACE 1 SPRAY INTO THE NOSTRIL(S) ONCE DAILY)
     Route: 045
  22. LANTUS [Concomitant]
     Active Substance: INSULIN GLARGINE
     Dosage: 65 IU, UNK (INCREASE EVENING TO 65 IU)
  23. SYNTHROID [Concomitant]
     Active Substance: LEVOTHYROXINE SODIUM
     Dosage: 75 UG, 1X/DAY
     Route: 048
  24. PROVENTIL HFA [Concomitant]
     Active Substance: ALBUTEROL SULFATE
     Dosage: 4X/DAY (90 MCG; INHALE 2 PUFFS INTO THE LUNGS 4 (FOUR) TIMES DAILY)
     Route: 045
  25. ASPIRIN. [Concomitant]
     Active Substance: ASPIRIN
     Indication: DIABETES MELLITUS
     Dosage: 325 MG, 1X/DAY
     Route: 048
  26. CORTISPORIN [Concomitant]
     Active Substance: BACITRACIN ZINC\HYDROCORTISONE\NEOMYCIN SULFATE\POLYMYXIN B SULFATE
     Indication: PSORIASIS
     Dosage: UNK, 4X/DAY, (PLACE 4 DROPS INTO BOTH EARS 4 (FOUR) TIMES DAILY)
  27. LYRICA [Suspect]
     Active Substance: PREGABALIN
     Indication: MYOPATHY
     Dosage: 1 DF, 2X/DAY
     Route: 048
  28. HYDROCODONE [Concomitant]
     Active Substance: HYDROCODONE
     Indication: PAIN
     Dosage: 500 MG, 3X/DAY
  29. FLEXERIL [Concomitant]
     Active Substance: CYCLOBENZAPRINE HYDROCHLORIDE
     Indication: PAIN
  30. OMEGA-3 FATTY ACIDS [Concomitant]
     Active Substance: OMEGA-3 FATTY ACIDS
     Indication: BLOOD CHOLESTEROL INCREASED
     Dosage: 1000 MG, 3X/DAY
     Route: 048
  31. HYDROCODONE [Concomitant]
     Active Substance: HYDROCODONE
     Dosage: UNK, 2X/DAY (NOW ITS 7 1/2 2006 + NOW TWO TIMES A DAY)
     Dates: start: 2006
  32. BACITRACIN. [Concomitant]
     Active Substance: BACITRACIN
     Indication: SKIN INFECTION
     Dosage: 2X/DAY (500 UNIT/GRAM)
     Route: 061
  33. LASIX [Concomitant]
     Active Substance: FUROSEMIDE
     Dosage: 40 MG, 2X/DAY
     Route: 048
  34. NORCO [Concomitant]
     Active Substance: ACETAMINOPHEN\HYDROCODONE BITARTRATE
     Dosage: 1 DF, 2X/DAY (HYDROCODONE BITARTRATE: 7.5 MG, PARACETAMOL: 325 MG))
     Route: 048
  35. NOVOLOG [Concomitant]
     Active Substance: INSULIN ASPART
     Dosage: 3X/DAY (PT HAS SLIDING SCALE, AVERAGE AROUND 200 MG/DL (8-10 UNITS), TESTS 3 TIMES DAILY)
  36. LEVOTHROID [Concomitant]
     Active Substance: LEVOTHYROXINE SODIUM
     Dosage: 75 UG, 1X/DAY
     Route: 048

REACTIONS (17)
  - Respiratory disorder [Recovering/Resolving]
  - Respiratory failure [Unknown]
  - Pneumonia bacterial [Unknown]
  - Weight fluctuation [Unknown]
  - Pneumonia [Not Recovered/Not Resolved]
  - Pneumonia viral [Unknown]
  - Memory impairment [Unknown]
  - Vision blurred [Unknown]
  - Sinus headache [Unknown]
  - Arthropod bite [Unknown]
  - Gait disturbance [Unknown]
  - Malaise [Unknown]
  - Thinking abnormal [Unknown]
  - Drug dependence [Unknown]
  - Muscle spasms [Unknown]
  - Glycosylated haemoglobin abnormal [Unknown]
  - Panic disorder [Unknown]

NARRATIVE: CASE EVENT DATE: 2015
